FAERS Safety Report 10084480 (Version 1)
Quarter: 2014Q2

REPORT INFORMATION
  Report Type: Spontaneous
  Country: GB (occurrence: GB)
  Receive Date: 20140417
  Receipt Date: 20140417
  Transmission Date: 20141212
  Serious: Yes (Other)
  Sender: FDA-Public Use
  Company Number: GB-TEVA-473892ISR

PATIENT
  Age: 27 Year
  Sex: Female
  Weight: 76.2 kg

DRUGS (1)
  1. MONTELUKAST [Suspect]
     Indication: SEASONAL ALLERGY
     Route: 048
     Dates: start: 20110102, end: 20110116

REACTIONS (4)
  - Chest pain [Recovered/Resolved]
  - Pain [Recovered/Resolved]
  - Heart rate irregular [Recovered/Resolved]
  - Malaise [Recovered/Resolved]
